FAERS Safety Report 23726349 (Version 1)
Quarter: 2024Q2

REPORT INFORMATION
  Report Type: Spontaneous
  Country: US (occurrence: US)
  Receive Date: 20240410
  Receipt Date: 20240410
  Transmission Date: 20240716
  Serious: Yes (Death, Other)
  Sender: FDA-Public Use
  Company Number: US-ENDO PHARMACEUTICALS INC-2023-006389

PATIENT
  Sex: Male

DRUGS (21)
  1. BUPRENORPHINE HYDROCHLORIDE [Suspect]
     Active Substance: BUPRENORPHINE HYDROCHLORIDE
     Indication: Back injury
     Dosage: UNK UNKNOWN, UNKNOWN
     Route: 065
  2. ENDOCET [Suspect]
     Active Substance: ACETAMINOPHEN\OXYCODONE HYDROCHLORIDE
     Indication: Back injury
     Dosage: UNK UNKNOWN, UNKNOWN
     Route: 065
  3. ENDODAN [Suspect]
     Active Substance: ASPIRIN\OXYCODONE HYDROCHLORIDE
     Indication: Back injury
     Dosage: UNK UNKNOWN, UNKNOWN
     Route: 065
  4. HYDROCODONE BITARTRATE AND ACETAMINOPHEN [Suspect]
     Active Substance: ACETAMINOPHEN\HYDROCODONE BITARTRATE
     Indication: Back injury
     Dosage: UNK UNKNOWN, UNKNOWN
     Route: 065
  5. OPANA ER [Suspect]
     Active Substance: OXYMORPHONE HYDROCHLORIDE
     Indication: Back injury
     Dosage: UNK UNKNOWN, UNKNOWN
     Route: 065
  6. ACETAMINOPHEN\OXYCODONE HYDROCHLORIDE [Suspect]
     Active Substance: ACETAMINOPHEN\OXYCODONE HYDROCHLORIDE
     Indication: Back injury
     Dosage: UNK UNKNOWN, UNKNOWN
     Route: 065
  7. PERCOCET [Suspect]
     Active Substance: ACETAMINOPHEN\OXYCODONE HYDROCHLORIDE
     Indication: Back injury
     Dosage: UNK UNKNOWN, UNKNOWN
     Route: 065
  8. TRAMADOL HYDROCHLORIDE [Suspect]
     Active Substance: TRAMADOL HYDROCHLORIDE
     Indication: Back injury
     Dosage: UNK UNKNOWN, UNKNOWN
     Route: 065
  9. BELBUCA [Suspect]
     Active Substance: BUPRENORPHINE HYDROCHLORIDE
     Indication: Back injury
     Dosage: UNK UNKNOWN, UNKNOWN
     Route: 065
  10. DEPODUR [Suspect]
     Active Substance: MORPHINE SULFATE
     Indication: Back injury
     Dosage: UNK UNKNOWN, UNKNOWN
     Route: 065
  11. OPANA [Suspect]
     Active Substance: OXYMORPHONE HYDROCHLORIDE
     Indication: Back injury
     Dosage: UNK UNKNOWN, UNKNOWN
     Route: 065
  12. ZYDONE [Suspect]
     Active Substance: ACETAMINOPHEN\HYDROCODONE BITARTRATE
     Indication: Back injury
     Dosage: UNK UNKNOWN, UNKNOWN
     Route: 065
  13. ACETAMINOPHEN AND CODEINE [Suspect]
     Active Substance: ACETAMINOPHEN\CODEINE PHOSPHATE
     Indication: Back injury
     Dosage: UNK UNKNOWN, UNKNOWN
     Route: 065
  14. FENTANYL [Suspect]
     Active Substance: FENTANYL\FENTANYL CITRATE
     Indication: Back injury
     Dosage: UNK UNKNOWN, UNKNOWN
     Route: 065
  15. HYDROCODONE BITARTRATE AND IBUPROFEN [Suspect]
     Active Substance: HYDROCODONE BITARTRATE\IBUPROFEN
     Indication: Back injury
     Dosage: UNK UNKNOWN, UNKNOWN
     Route: 065
  16. ABSTRAL [Suspect]
     Active Substance: FENTANYL CITRATE
     Indication: Back injury
     Dosage: UNK UNKNOWN, UNKNOWN
     Route: 065
  17. METHADONE HYDROCHLORIDE [Suspect]
     Active Substance: METHADONE HYDROCHLORIDE
     Indication: Back injury
     Dosage: UNK UNKNOWN, UNKNOWN
     Route: 065
  18. METHADONE HYDROCHLORIDE [Suspect]
     Active Substance: METHADONE HYDROCHLORIDE
     Indication: Back injury
     Dosage: UNK UNKNOWN, UNKNOWN
     Route: 065
  19. TRAMADOL HYDROCHLORIDE [Suspect]
     Active Substance: TRAMADOL HYDROCHLORIDE
     Indication: Back injury
     Dosage: UNK UNKNOWN, UNKNOWN
     Route: 065
  20. MORPHINE SULFATE [Suspect]
     Active Substance: MORPHINE SULFATE
     Indication: Back injury
     Dosage: UNK UNKNOWN, UNKNOWN
     Route: 065
  21. FENTANYL CITRATE [Suspect]
     Active Substance: FENTANYL CITRATE
     Indication: Back injury
     Dosage: UNK UNKNOWN, UNKNOWN
     Route: 065

REACTIONS (7)
  - Death [Fatal]
  - Mania [Unknown]
  - Weight increased [Unknown]
  - Depression [Unknown]
  - Overdose [Unknown]
  - Dependence [Unknown]
  - Ill-defined disorder [Unknown]
